FAERS Safety Report 7804552-0 (Version None)
Quarter: 2011Q4

REPORT INFORMATION
  Report Type: 
  Country: None (occurrence: None)
  Receive Date: 20111010
  Receipt Date: 20111007
  Transmission Date: 20120403
  Serious: Yes (Hospitalization)
  Sender: FDA-Public Use
  Company Number: PHHO2010US16517

PATIENT
  Sex: Male
  Weight: 77.551 kg

DRUGS (2)
  1. GILENYA [Suspect]
     Indication: MULTIPLE SCLEROSIS
     Dosage: DOSE BLINDED
  2. GILENYA [Suspect]
     Dosage: 0.5MG
     Route: 048
     Dates: start: 20100419, end: 20101027

REACTIONS (4)
  - ALANINE AMINOTRANSFERASE INCREASED [None]
  - HEADACHE [None]
  - NAUSEA [None]
  - NASOPHARYNGITIS [None]
